FAERS Safety Report 8529545-X (Version None)
Quarter: 2012Q2

REPORT INFORMATION
  Report Type: 
  Country: None (occurrence: None)
  Receive Date: 20120409
  Receipt Date: 20110509
  Transmission Date: 20120825
  Serious: Yes (Other)
  Sender: FDA-Public Use
  Company Number: 2011-205

PATIENT
  Age: 22 Year
  Sex: Male
  Weight: 74.4 kg

DRUGS (8)
  1. LAMICTAL [Concomitant]
  2. MIRALAX (MIRALAX) [Concomitant]
  3. LEVOTHYROXINE SODIUM [Concomitant]
  4. BENEFIBER (BENEFIBER) [Concomitant]
  5. GUAIFENESIN [Concomitant]
  6. KEPPRA [Concomitant]
  7. MULTIVIT (VITAMINS NOS) [Concomitant]
  8. FAZACLO ODT [Suspect]
     Indication: SCHIZOAFFECTIVE DISORDER
     Dosage: 600 MG, QD, ORAL
     Route: 048
     Dates: start: 20080610

REACTIONS (4)
  - TACHYCARDIA [None]
  - HYPERTENSION [None]
  - DYSPNOEA [None]
  - CHEST PAIN [None]
